FAERS Safety Report 21702241 (Version 1)
Quarter: 2022Q4

REPORT INFORMATION
  Report Type: Report from Study
  Country: US (occurrence: US)
  Receive Date: 20221208
  Receipt Date: 20221208
  Transmission Date: 20230113
  Serious: No
  Sender: FDA-Public Use
  Company Number: US-INCYTE CORPORATION-2022IN011719

PATIENT

DRUGS (1)
  1. JAKAFI [Suspect]
     Active Substance: RUXOLITINIB
     Indication: Polycythaemia vera
     Dosage: I TAKE JAKAFI 10MG IN THE MORNING AND 15MG IN THE EVENING
     Route: 048

REACTIONS (8)
  - Night sweats [Unknown]
  - Pruritus [Unknown]
  - Fatigue [Unknown]
  - Depressed mood [Unknown]
  - Product dose omission issue [Unknown]
  - Weight increased [Unknown]
  - Dizziness [Unknown]
  - Dyspnoea [Unknown]
